FAERS Safety Report 8471404 (Version 2)
Quarter: 2013Q2

REPORT INFORMATION
  Report Type: Report from Study
  Country: MX (occurrence: MX)
  Receive Date: 20120322
  Receipt Date: 20130422
  Transmission Date: 20140414
  Serious: Yes (Death, Other)
  Sender: FDA-Public Use
  Company Number: PHHY2012MX024400

PATIENT
  Age: 82 Year
  Sex: Female

DRUGS (2)
  1. GALVUS [Suspect]
     Indication: DIABETES MELLITUS
     Dosage: 50 MG
  2. DIOVAN [Suspect]
     Indication: HYPERTENSION
     Dosage: 320 MG, DAILY
     Route: 048
     Dates: start: 20090830

REACTIONS (12)
  - Diabetic complication [Fatal]
  - Renal failure chronic [Unknown]
  - Diarrhoea haemorrhagic [Unknown]
  - Haematemesis [Unknown]
  - Decreased appetite [Unknown]
  - Hypoglycaemia [Unknown]
  - Diarrhoea [Unknown]
  - Vomiting [Unknown]
  - Vision blurred [Unknown]
  - Somnolence [Unknown]
  - Asthenia [Unknown]
  - Headache [Unknown]
